FAERS Safety Report 15949017 (Version 1)
Quarter: 2019Q1

REPORT INFORMATION
  Report Type: Spontaneous
  Country: US (occurrence: US)
  Receive Date: 20190211
  Receipt Date: 20190211
  Transmission Date: 20190417
  Serious: Yes (Other)
  Sender: FDA-Public Use
  Company Number: US-PRINSTON PHARMACEUTICAL INC.-2018PRN01185

PATIENT
  Age: 73 Year
  Sex: Female
  Weight: 88.44 kg

DRUGS (9)
  1. LIPITOR [Concomitant]
     Active Substance: ATORVASTATIN CALCIUM
  2. LEVOTHYROXINE. [Concomitant]
     Active Substance: LEVOTHYROXINE
  3. METFORMIN [Concomitant]
     Active Substance: METFORMIN HYDROCHLORIDE
  4. ASPIRIN. [Concomitant]
     Active Substance: ASPIRIN
     Dosage: UNK, 1X/DAY
  5. FENOFIBRATE. [Suspect]
     Active Substance: FENOFIBRATE
  6. GLIMEPIRIDE. [Concomitant]
     Active Substance: GLIMEPIRIDE
  7. LOSARTAN POTASSIUM (AUROBINDO) [Suspect]
     Active Substance: LOSARTAN POTASSIUM
     Indication: HYPERTENSION
     Dosage: UNK
     Dates: start: 20180720
  8. VALSARTAN. [Suspect]
     Active Substance: VALSARTAN
     Indication: HYPERTENSION
     Dosage: 160 MG, 1X/DAY
     Route: 048
     Dates: start: 20171206, end: 201807
  9. VALSARTAN AND HYDROCHLOROTHIAZIDE [Suspect]
     Active Substance: HYDROCHLOROTHIAZIDE\VALSARTAN
     Indication: HYPERTENSION
     Dosage: 80/12.5 MG, 1X/DAY
     Route: 048
     Dates: start: 2013, end: 20171205

REACTIONS (13)
  - Recalled product administered [Recovered/Resolved]
  - Chromaturia [Recovering/Resolving]
  - Tension headache [Recovering/Resolving]
  - Drug ineffective [Recovered/Resolved]
  - Feeling abnormal [Unknown]
  - Hypertension [Recovering/Resolving]
  - Blood sodium decreased [Recovered/Resolved]
  - Performance status decreased [Unknown]
  - Blood electrolytes decreased [Recovering/Resolving]
  - Migraine [Recovering/Resolving]
  - Product dose omission [Recovered/Resolved]
  - Cataract [Unknown]
  - Photophobia [Unknown]

NARRATIVE: CASE EVENT DATE: 201712
